FAERS Safety Report 12606214 (Version 1)
Quarter: 2016Q3

REPORT INFORMATION
  Report Type: Spontaneous
  Country: US (occurrence: None)
  Receive Date: 20160728
  Receipt Date: 20160728
  Transmission Date: 20161109
  Serious: No
  Sender: FDA-Public Use
  Company Number: None

PATIENT
  Age: 80 Year
  Sex: Male
  Weight: 83.92 kg

DRUGS (11)
  1. LEVEMIR [Concomitant]
     Active Substance: INSULIN DETEMIR
  2. COQ10 [Concomitant]
     Active Substance: UBIDECARENONE
  3. VALSARTAN. [Concomitant]
     Active Substance: VALSARTAN
  4. CHLORTHALIDONE. [Concomitant]
     Active Substance: CHLORTHALIDONE
  5. MAGNESIUM [Concomitant]
     Active Substance: MAGNESIUM
  6. BYSTOLIC [Concomitant]
     Active Substance: NEBIVOLOL HYDROCHLORIDE
  7. GABAPENTIN. [Concomitant]
     Active Substance: GABAPENTIN
  8. NOVOLOG [Concomitant]
     Active Substance: INSULIN ASPART
  9. REPATHA [Suspect]
     Active Substance: EVOLOCUMAB
     Indication: BLOOD CHOLESTEROL ABNORMAL
     Dosage: 1 INJECTION (S) EVERY TWO WEEKS GIVEN INTO/UNDER THE SKIN
     Dates: start: 20160301, end: 20160430
  10. AMLODIPINE BESYLATE. [Concomitant]
     Active Substance: AMLODIPINE BESYLATE
  11. SYMBICORT [Concomitant]
     Active Substance: BUDESONIDE\FORMOTEROL FUMARATE DIHYDRATE

REACTIONS (5)
  - Arthralgia [None]
  - Pain [None]
  - Back pain [None]
  - Peripheral swelling [None]
  - Serum ferritin increased [None]

NARRATIVE: CASE EVENT DATE: 20160430
